FAERS Safety Report 7967405-3 (Version None)
Quarter: 2011Q4

REPORT INFORMATION
  Report Type: 
  Country: None (occurrence: None)
  Receive Date: 20111209
  Receipt Date: 20111129
  Transmission Date: 20120403
  Serious: Yes (Hospitalization)
  Sender: FDA-Public Use
  Company Number: JP-SANOFI-AVENTIS-2011SA078760

PATIENT
  Age: 76 Year
  Sex: Male
  Weight: 48 kg

DRUGS (18)
  1. BLADDERON [Concomitant]
     Indication: POLLAKIURIA
     Route: 048
     Dates: start: 20111110
  2. UREA [Concomitant]
     Indication: DRY SKIN
     Dates: start: 20110819
  3. GIMERACIL/OTERACIL POTASSIUM/TEGAFUR [Suspect]
     Route: 048
     Dates: start: 20110603
  4. GIMERACIL/OTERACIL POTASSIUM/TEGAFUR [Suspect]
     Route: 048
     Dates: start: 20110826
  5. GOSHAJINKIGAN [Concomitant]
     Indication: NERVOUS SYSTEM DISORDER
     Route: 048
     Dates: start: 20111104
  6. OXALIPLATIN [Suspect]
     Route: 041
     Dates: start: 20110729
  7. GIMERACIL/OTERACIL POTASSIUM/TEGAFUR [Suspect]
     Route: 048
     Dates: start: 20111104, end: 20111115
  8. GIMERACIL/OTERACIL POTASSIUM/TEGAFUR [Suspect]
     Route: 048
     Dates: start: 20111014
  9. OXALIPLATIN [Suspect]
     Indication: GASTRIC CANCER
     Route: 041
     Dates: start: 20110603, end: 20110603
  10. GIMERACIL/OTERACIL POTASSIUM/TEGAFUR [Suspect]
     Indication: GASTRIC CANCER
     Route: 048
     Dates: start: 20110729
  11. GIMERACIL/OTERACIL POTASSIUM/TEGAFUR [Suspect]
     Route: 048
     Dates: start: 20110708
  12. GIMERACIL/OTERACIL POTASSIUM/TEGAFUR [Suspect]
     Route: 048
     Dates: start: 20110916
  13. RISUMIC [Concomitant]
     Indication: BLOOD PRESSURE DECREASED
     Route: 048
     Dates: start: 20110922
  14. OXALIPLATIN [Suspect]
     Route: 041
     Dates: start: 20110708
  15. OXALIPLATIN [Suspect]
     Route: 041
     Dates: start: 20111104, end: 20111115
  16. OXALIPLATIN [Suspect]
     Route: 041
     Dates: start: 20110826
  17. OXALIPLATIN [Suspect]
     Route: 041
     Dates: start: 20110916
  18. OXALIPLATIN [Suspect]
     Route: 041
     Dates: start: 20111014

REACTIONS (1)
  - ARRHYTHMIA [None]
